FAERS Safety Report 6824291-2 (Version None)
Quarter: 2010Q3

REPORT INFORMATION
  Report Type: 
  Country: None (occurrence: None)
  Receive Date: 20100708
  Receipt Date: 20061016
  Transmission Date: 20110219
  Serious: No
  Sender: FDA-Public Use
  Company Number: US-PFIZER INC-2006127940

PATIENT
  Sex: Female
  Weight: 76.2 kg

DRUGS (20)
  1. CHANTIX [Suspect]
     Indication: SMOKING CESSATION THERAPY
     Route: 048
     Dates: start: 20061006
  2. ADVAIR DISKUS 100/50 [Concomitant]
  3. XOPENEX [Concomitant]
  4. ALL OTHER THERAPEUTIC PRODUCTS [Concomitant]
  5. LIPITOR [Concomitant]
  6. AGGRENOX [Concomitant]
  7. GABAPENTIN [Concomitant]
  8. REQUIP [Concomitant]
  9. CYMBALTA [Concomitant]
  10. MONTELUKAST SODIUM [Concomitant]
     Dates: start: 20061001
  11. ALTACE [Concomitant]
  12. EVISTA [Concomitant]
  13. DIAZEPAM [Concomitant]
  14. VESICARE [Concomitant]
  15. ALL OTHER THERAPEUTIC PRODUCTS [Concomitant]
  16. LEVOTHYROXINE SODIUM [Concomitant]
  17. VITAMIN D [Concomitant]
  18. CALCIUM CARBONATE [Concomitant]
  19. PRILOSEC [Concomitant]
  20. CLARITIN [Concomitant]

REACTIONS (1)
  - SOMNOLENCE [None]
